FAERS Safety Report 8969475 (Version 2)
Quarter: 2013Q1

REPORT INFORMATION
  Report Type: Report from Study
  Country: SE (occurrence: SE)
  Receive Date: 20121218
  Receipt Date: 20130122
  Transmission Date: 20140127
  Serious: Yes (Hospitalization)
  Sender: FDA-Public Use
  Company Number: SE-AMGEN-SWECT2012079120

PATIENT
  Age: 63 Year
  Sex: Female

DRUGS (3)
  1. ETANERCEPT [Suspect]
     Indication: PRODUCT USED FOR UNKNOWN INDICATION
     Dosage: 50 MG, QWK
     Route: 058
     Dates: start: 20070529, end: 20100823
  2. IMUREL                             /00001501/ [Concomitant]
     Dosage: UNK
     Dates: start: 20071002, end: 20080124
  3. PLAQUENIL                          /00072602/ [Concomitant]
     Dosage: UNK

REACTIONS (1)
  - Diverticulitis [Recovered/Resolved]
